FAERS Safety Report 14346054 (Version 4)
Quarter: 2018Q2

REPORT INFORMATION
  Report Type: Spontaneous
  Country: US (occurrence: US)
  Receive Date: 20180103
  Receipt Date: 20180514
  Transmission Date: 20180711
  Serious: No
  Sender: FDA-Public Use
  Company Number: US-PFIZER INC-2018000946

PATIENT
  Age: 68 Year
  Sex: Male
  Weight: 68.95 kg

DRUGS (3)
  1. VFEND [Suspect]
     Active Substance: VORICONAZOLE
     Indication: ASPERGILLUS INFECTION
     Dosage: 200MG, TABLET, BY MOUTH, TWICE A DAY
     Route: 048
     Dates: start: 201711
  2. VFEND [Interacting]
     Active Substance: VORICONAZOLE
     Dosage: 300 MG, 2X/DAY
     Dates: start: 201711
  3. SIMVASTATIN. [Interacting]
     Active Substance: SIMVASTATIN
     Indication: BLOOD CHOLESTEROL ABNORMAL
     Dosage: 40MG, ONE TABLET AT BEDTIME
     Dates: end: 201711

REACTIONS (1)
  - Drug interaction [Unknown]
